FAERS Safety Report 11482390 (Version 1)
Quarter: 2015Q3

REPORT INFORMATION
  Report Type: Spontaneous
  Country: US (occurrence: US)
  Receive Date: 20150909
  Receipt Date: 20150909
  Transmission Date: 20151125
  Serious: No
  Sender: FDA-Public Use
  Company Number: US-JAZZ-2014-US-015337

PATIENT
  Age: 57 Year
  Sex: Male

DRUGS (3)
  1. XYREM [Suspect]
     Active Substance: SODIUM OXYBATE
     Indication: NARCOLEPSY
     Dosage: 1.5 G, BID
     Route: 048
     Dates: start: 20141115, end: 201411
  2. TRAMADOL. [Suspect]
     Active Substance: TRAMADOL
     Indication: PRODUCT USED FOR UNKNOWN INDICATION
     Dosage: UNK
     Dates: start: 20141119
  3. XYREM [Suspect]
     Active Substance: SODIUM OXYBATE
     Indication: CATAPLEXY
     Dosage: DOUBLED HIS DOSE TO 3 G
     Route: 048
     Dates: start: 201411

REACTIONS (5)
  - Stupor [Unknown]
  - Nightmare [Not Recovered/Not Resolved]
  - Sleep terror [Unknown]
  - Intentional product use issue [Unknown]
  - Hallucination [Unknown]

NARRATIVE: CASE EVENT DATE: 201411
